FAERS Safety Report 17325228 (Version 2)
Quarter: 2020Q1

REPORT INFORMATION
  Report Type: Spontaneous
  Country: IT (occurrence: IT)
  Receive Date: 20200127
  Receipt Date: 20200211
  Transmission Date: 20200409
  Serious: Yes (Hospitalization)
  Sender: FDA-Public Use
  Company Number: IT-ROCHE-2526255

PATIENT
  Age: 46 Year
  Sex: Male

DRUGS (1)
  1. CLONAZEPAM. [Suspect]
     Active Substance: CLONAZEPAM
     Indication: INTERVERTEBRAL DISC DISORDER
     Route: 048
     Dates: start: 20191227, end: 20191227

REACTIONS (2)
  - Medication error [Unknown]
  - Depressed level of consciousness [Recovered/Resolved]

NARRATIVE: CASE EVENT DATE: 20191227
